FAERS Safety Report 14230019 (Version 1)
Quarter: 2017Q4

REPORT INFORMATION
  Report Type: Report from Study
  Country: JP (occurrence: JP)
  Receive Date: 20171128
  Receipt Date: 20171128
  Transmission Date: 20180321
  Serious: Yes (Death, Hospitalization, Other)
  Sender: FDA-Public Use
  Company Number: JP-SHIRE-ALL1-2013-03797

PATIENT
  Age: 49 Year
  Sex: Male

DRUGS (47)
  1. REGPARA [Suspect]
     Active Substance: CINACALCET HYDROCHLORIDE
     Dosage: 25 MG, OTHER (25 MG 4 DAYS/WEEK (OFF DIALYSIS DAY))
     Route: 048
     Dates: start: 20110801, end: 20120519
  2. REGPARA [Suspect]
     Active Substance: CINACALCET HYDROCHLORIDE
     Dosage: 75 MG, OTHER (75 MG DAILY ONLY ON DIALYSIS DAY)
     Route: 048
     Dates: start: 20100715, end: 20110731
  3. CALTAN [Concomitant]
     Active Substance: CALCIUM CARBONATE
     Indication: HYPERPHOSPHATAEMIA
     Dosage: 1.5 G, UNKNOWN
     Route: 048
     Dates: start: 20100912
  4. ROCALTROL [Concomitant]
     Active Substance: CALCITRIOL
     Dosage: 1.5 ?G, 1X/WEEK
     Route: 042
     Dates: start: 20110514, end: 20110609
  5. ROCALTROL [Concomitant]
     Active Substance: CALCITRIOL
     Dosage: 2 ?G, 1X/WEEK
     Route: 042
     Dates: start: 20101211, end: 20110512
  6. ROCALTROL [Concomitant]
     Active Substance: CALCITRIOL
     Dosage: 4.5 ?G, 1X/WEEK
     Route: 042
     Dates: start: 20100828, end: 20101007
  7. ROCALTROL [Concomitant]
     Active Substance: CALCITRIOL
     Dosage: 6.0 ?G, 1X/WEEK
     Route: 042
     Dates: start: 20100724, end: 20100826
  8. OXAROL [Concomitant]
     Active Substance: MAXACALCITOL
     Indication: PRODUCT USED FOR UNKNOWN INDICATION
  9. REBAMIPIDE [Concomitant]
     Active Substance: REBAMIPIDE
     Indication: PRODUCT USED FOR UNKNOWN INDICATION
  10. SACCHARATED IRON OXIDE [Concomitant]
     Active Substance: IRON SUCROSE
     Indication: PRODUCT USED FOR UNKNOWN INDICATION
  11. ROCALTROL [Concomitant]
     Active Substance: CALCITRIOL
     Dosage: 2.0 ?G, 1X/WEEK
     Route: 042
     Dates: start: 20101009, end: 20101127
  12. POSTERISAN                         /00028601/ [Concomitant]
     Indication: PRODUCT USED FOR UNKNOWN INDICATION
     Dosage: 2 G, AS REQ^D
     Route: 061
  13. RENAGEL [Concomitant]
     Active Substance: SEVELAMER HYDROCHLORIDE
     Indication: HYPERPHOSPHATAEMIA
     Dosage: 3 G, UNKNOWN
     Route: 048
  14. CALTAN [Concomitant]
     Active Substance: CALCIUM CARBONATE
     Dosage: 2 G, UNKNOWN
     Route: 048
     Dates: start: 20100808, end: 20100911
  15. ROCALTROL [Concomitant]
     Active Substance: CALCITRIOL
     Dosage: 7.5 ?G, 1X/WEEK
     Route: 042
     Dates: start: 20081115, end: 20100527
  16. PURSENNID                          /00571902/ [Concomitant]
     Active Substance: SENNOSIDES A AND B
     Indication: PRODUCT USED FOR UNKNOWN INDICATION
     Dosage: 36 MG, UNKNOWN
     Route: 048
  17. POSTERISAN                         /00028601/ [Concomitant]
     Indication: PRODUCT USED FOR UNKNOWN INDICATION
  18. CALTAN [Concomitant]
     Active Substance: CALCIUM CARBONATE
     Dosage: 3 G, UNKNOWN
     Route: 048
     Dates: start: 19910605, end: 20100807
  19. ROCALTROL [Concomitant]
     Active Substance: CALCITRIOL
     Dosage: 3.5 ?G, 1X/WEEK
     Route: 042
     Dates: start: 20111110, end: 20120913
  20. AMLODIPINE BESILATE [Concomitant]
     Active Substance: AMLODIPINE BESYLATE
     Indication: HYPERTENSION
  21. SENNA [Concomitant]
     Active Substance: SENNA LEAF\SENNOSIDES\SENNOSIDES A AND B
     Indication: PRODUCT USED FOR UNKNOWN INDICATION
  22. REGPARA [Suspect]
     Active Substance: CINACALCET HYDROCHLORIDE
     Dosage: 50 MG, OTHER (50 MG 3 DAYS/WEEK (ON DIALYSIS DAY))
     Route: 048
     Dates: start: 20110801, end: 20120519
  23. ROCALTROL [Concomitant]
     Active Substance: CALCITRIOL
     Dosage: 2 ?G, 1X/WEEK
     Route: 042
     Dates: start: 20120915, end: 20130207
  24. ROCALTROL [Concomitant]
     Active Substance: CALCITRIOL
     Dosage: 4.5 ?G, 1X/WEEK
     Route: 042
     Dates: start: 20101130, end: 20101209
  25. TAKEPRON [Concomitant]
     Active Substance: LANSOPRAZOLE
     Indication: PRODUCT USED FOR UNKNOWN INDICATION
     Dosage: 30 MG, UNKNOWN
     Route: 048
  26. AMLODIN [Concomitant]
     Active Substance: AMLODIPINE BESYLATE
     Dosage: 2.5 MG, OTHER(ON DIALYSIS DAYS)
     Route: 048
  27. FESIN                              /00023550/ [Concomitant]
     Active Substance: IRON SUCROSE
     Indication: PRODUCT USED FOR UNKNOWN INDICATION
     Dosage: 40 MG, 1X/WEEK
     Route: 042
  28. EPOGIN [Concomitant]
     Active Substance: ERYTHROPOIETIN
     Indication: PRODUCT USED FOR UNKNOWN INDICATION
     Dosage: 3000 IU, 1X/WEEK
     Route: 042
  29. EPOETIN BETA [Concomitant]
     Active Substance: ERYTHROPOIETIN
     Indication: PRODUCT USED FOR UNKNOWN INDICATION
  30. ROCALTROL [Concomitant]
     Active Substance: CALCITRIOL
     Dosage: 9.0 ?G, 1X/WEEK
     Route: 042
     Dates: start: 20100529, end: 20100722
  31. FERRIC CITRATE [Concomitant]
     Active Substance: TETRAFERRIC TRICITRATE DECAHYDRATE
     Indication: PRODUCT USED FOR UNKNOWN INDICATION
  32. 405 (LANTHANUM CARBONATE) [Suspect]
     Active Substance: LANTHANUM CARBONATE
     Indication: HYPERPARATHYROIDISM SECONDARY
     Dosage: 1500 MG, OTHER(DAILY)
     Route: 048
     Dates: start: 20100905, end: 20110212
  33. 405 (LANTHANUM CARBONATE) [Suspect]
     Active Substance: LANTHANUM CARBONATE
     Dosage: 2250 MG, OTHER(DAILY)
     Route: 048
     Dates: start: 20110213, end: 20140822
  34. 405 (LANTHANUM CARBONATE) [Suspect]
     Active Substance: LANTHANUM CARBONATE
     Dosage: 2250 MG, UNK
     Dates: start: 20150512, end: 20170407
  35. REGPARA [Suspect]
     Active Substance: CINACALCET HYDROCHLORIDE
     Indication: HYPERPARATHYROIDISM SECONDARY
     Dosage: 50 MG, 1X/DAY:QD
     Route: 048
     Dates: start: 20120520
  36. REGPARA [Suspect]
     Active Substance: CINACALCET HYDROCHLORIDE
     Dosage: 75 MG, 1X/DAY:QD
     Route: 048
     Dates: start: 20080921, end: 20100713
  37. ROCALTROL [Concomitant]
     Active Substance: CALCITRIOL
     Indication: PRODUCT USED FOR UNKNOWN INDICATION
     Dosage: 3 ?G, 1X/WEEK
     Route: 042
     Dates: start: 20130209
  38. ROCALTROL [Concomitant]
     Active Substance: CALCITRIOL
     Dosage: 2.5 ?G, 1X/WEEK
     Route: 042
     Dates: start: 20110816, end: 20111108
  39. ROCALTROL [Concomitant]
     Active Substance: CALCITRIOL
     Dosage: 2 ?G, 1X/WEEK
     Route: 042
     Dates: start: 20110611, end: 20110813
  40. AMLODIN [Concomitant]
     Active Substance: AMLODIPINE BESYLATE
     Indication: HYPERTENSION
     Dosage: 5 MG, OTHER(OFF DIALYSIS DAYS)
     Route: 048
  41. SEVELAMER [Concomitant]
     Active Substance: SEVELAMER
     Indication: HYPERPHOSPHATAEMIA
  42. CALCITRIOL. [Concomitant]
     Active Substance: CALCITRIOL
     Indication: PRODUCT USED FOR UNKNOWN INDICATION
  43. LANSOPRAZOLE. [Concomitant]
     Active Substance: LANSOPRAZOLE
     Indication: PRODUCT USED FOR UNKNOWN INDICATION
  44. MAXACALCITOL [Concomitant]
     Active Substance: MAXACALCITOL
     Indication: PRODUCT USED FOR UNKNOWN INDICATION
  45. 405 (LANTHANUM CARBONATE) [Suspect]
     Active Substance: LANTHANUM CARBONATE
     Indication: HYPERPHOSPHATAEMIA
     Dosage: 750 MG, OTHER(DAILY
     Route: 048
     Dates: start: 20100403, end: 20100904
  46. MUCOSTA [Concomitant]
     Active Substance: REBAMIPIDE
     Indication: PRODUCT USED FOR UNKNOWN INDICATION
     Dosage: 300 MG, UNKNOWN
     Route: 048
  47. CALCIUM CARBONATE. [Concomitant]
     Active Substance: CALCIUM CARBONATE
     Indication: PRODUCT USED FOR UNKNOWN INDICATION

REACTIONS (9)
  - Carpal tunnel syndrome [Recovering/Resolving]
  - Angina pectoris [Recovering/Resolving]
  - Pulmonary tuberculosis [Recovered/Resolved]
  - Nausea [Recovered/Resolved]
  - Loss of consciousness [Fatal]
  - Angina pectoris [Recovering/Resolving]
  - Cardiac failure congestive [Fatal]
  - Peripheral arterial occlusive disease [Recovered/Resolved]
  - Hyperparathyroidism secondary [Not Recovered/Not Resolved]

NARRATIVE: CASE EVENT DATE: 20100510
